FAERS Safety Report 10881126 (Version 1)
Quarter: 2015Q1

REPORT INFORMATION
  Report Type: Spontaneous
  Country: US (occurrence: None)
  Receive Date: 20150225
  Receipt Date: 20150225
  Transmission Date: 20150721
  Serious: Yes (Life-Threatening, Hospitalization, Disabling)
  Sender: FDA-Public Use
  Company Number: None

PATIENT
  Age: 27 Year
  Sex: Female
  Weight: 43.2 kg

DRUGS (4)
  1. AZATHIOPRINE. [Concomitant]
     Active Substance: AZATHIOPRINE
  2. BENLYSTA [Suspect]
     Active Substance: BELIMUMAB
     Indication: SYSTEMIC LUPUS ERYTHEMATOSUS
     Dates: start: 20150210
  3. PREDNISONE. [Concomitant]
     Active Substance: PREDNISONE
  4. HYDROXYCHLOROQINE [Concomitant]

REACTIONS (14)
  - Cardiac failure acute [None]
  - Sinus tachycardia [None]
  - Acute psychosis [None]
  - Paranoia [None]
  - Viral infection [None]
  - Encephalitis [None]
  - Amnesia [None]
  - Hypotension [None]
  - Supraventricular tachycardia [None]
  - Neutropenia [None]
  - Pyrexia [None]
  - Tachycardia [None]
  - Electrocardiogram T wave abnormal [None]
  - Hallucination [None]

NARRATIVE: CASE EVENT DATE: 20150212
